FAERS Safety Report 9233316 (Version 1)
Quarter: 2013Q1

REPORT INFORMATION
  Report Type: Spontaneous
  Country: US (occurrence: None)
  Receive Date: 20121031
  Receipt Date: 20121031
  Transmission Date: 20140127
  Serious: No
  Sender: FDA-Public Use
  Company Number: PHEH2012US014213

PATIENT
  Age: 37 Year
  Sex: Female

DRUGS (3)
  1. GILENYA (FTY) CAPSULE, 0.5MG [Suspect]
     Indication: MULTIPLE SCLEROSIS
     Route: 048
     Dates: start: 20120710, end: 20120721
  2. AMPHETAMINE (AMFETAMINE) (AMFETAMINE) [Concomitant]
  3. CYMBALTA (DULOXETINE HYDROCHLORIDE) [Concomitant]

REACTIONS (9)
  - Adnexa uteri pain [None]
  - Oropharyngeal pain [None]
  - Palpitations [None]
  - Influenza like illness [None]
  - Pain [None]
  - Fatigue [None]
  - Heart rate increased [None]
  - Back pain [None]
  - Headache [None]
